FAERS Safety Report 10257634 (Version 1)
Quarter: 2014Q2

REPORT INFORMATION
  Report Type: Spontaneous
  Country: KR (occurrence: KR)
  Receive Date: 20140625
  Receipt Date: 20140625
  Transmission Date: 20141212
  Serious: Yes (Death, Other)
  Sender: FDA-Public Use
  Company Number: KR-ELI_LILLY_AND_COMPANY-KR201406006506

PATIENT
  Age: 16 Year
  Sex: 0

DRUGS (2)
  1. GEMCITABINE HYDROCHLORIDE [Suspect]
     Indication: OSTEOSARCOMA
     Dosage: 1 DF, OTHER
     Route: 042
  2. DOCETAXEL [Suspect]
     Indication: OSTEOSARCOMA
     Dosage: 100 MG/M2, OTHER
     Route: 042

REACTIONS (2)
  - Disease progression [Fatal]
  - Neutropenia [Unknown]
